FAERS Safety Report 23521376 (Version 1)
Quarter: 2024Q1

REPORT INFORMATION
  Report Type: 
  Country: None (occurrence: None)
  Receive Date: 20240214
  Receipt Date: 20240214
  Transmission Date: 20240410
  Serious: No
  Sender: FDA-Public Use
  Company Number: US-ROCHE-3509507

PATIENT

DRUGS (3)
  1. RITUXIMAB [Suspect]
     Active Substance: RITUXIMAB
  2. METHOTREXATE [Concomitant]
     Active Substance: METHOTREXATE
  3. MELPHALAN [Concomitant]
     Active Substance: MELPHALAN
     Dosage: 10 MG/0.05 ML

REACTIONS (2)
  - Non-infectious endophthalmitis [None]
  - Eye inflammation [None]
